FAERS Safety Report 9758884 (Version 1)
Quarter: 2013Q4

REPORT INFORMATION
  Report Type: Spontaneous
  Country: US (occurrence: None)
  Receive Date: 20131216
  Receipt Date: 20131216
  Transmission Date: 20140711
  Serious: No
  Sender: FDA-Public Use
  Company Number: 163-POMAL-13041083 (0)

PATIENT
  Sex: Male

DRUGS (1)
  1. POMALYST [Suspect]
     Indication: AMYLOIDOSIS
     Dosage: PO

REACTIONS (1)
  - Dizziness [None]
